FAERS Safety Report 14987440 (Version 1)
Quarter: 2018Q2

REPORT INFORMATION
  Report Type: Spontaneous
  Country: US (occurrence: US)
  Receive Date: 20180518
  Receipt Date: 20180518
  Transmission Date: 20180711
  Serious: Yes (Death, Life-Threatening, Hospitalization, Disabling)
  Sender: FDA-Public Use
  Company Number: None

PATIENT
  Age: 62 Year
  Sex: Male
  Weight: 85.5 kg

DRUGS (19)
  1. HUMIRA [Suspect]
     Active Substance: ADALIMUMAB
     Indication: PSORIASIS
     Dosage: ?          QUANTITY:1 INJECTION(S);OTHER FREQUENCY:ONCE A WEEK.;?
     Route: 058
  2. MORPHINE [Concomitant]
     Active Substance: MORPHINE
  3. GABAPENTIN. [Concomitant]
     Active Substance: GABAPENTIN
  4. MUPIROCIN. [Concomitant]
     Active Substance: MUPIROCIN
  5. FENTANYL TRANSDERMAL SYSTEM [Concomitant]
     Active Substance: FENTANYL
  6. ASPIRIN. [Concomitant]
     Active Substance: ASPIRIN
  7. IBUPROFEN. [Concomitant]
     Active Substance: IBUPROFEN
  8. LORAZEPAM. [Concomitant]
     Active Substance: LORAZEPAM
  9. HYDROMORPHONE [Concomitant]
     Active Substance: HYDROMORPHONE
  10. BISACODYL. [Concomitant]
     Active Substance: BISACODYL
  11. ONDANSETRON [Concomitant]
     Active Substance: ONDANSETRON
  12. DOCUSATE [Concomitant]
     Active Substance: DOCUSATE
  13. SENNA [Concomitant]
     Active Substance: SENNA LEAF\SENNOSIDES\SENNOSIDES A AND B
  14. METHADONE [Concomitant]
     Active Substance: METHADONE HYDROCHLORIDE
  15. ZOLPIDEM [Concomitant]
     Active Substance: ZOLPIDEM\ZOLPIDEM TARTRATE
  16. POLYETHYLENE GLYCOL [Concomitant]
     Active Substance: POLYETHYLENE GLYCOLS
  17. PHENOBARBITAL. [Concomitant]
     Active Substance: PHENOBARBITAL
  18. IV FLUIDS [Concomitant]
     Active Substance: UNSPECIFIED INGREDIENT
  19. MELATONIN [Concomitant]
     Active Substance: MELATONIN

REACTIONS (8)
  - T-cell lymphoma [None]
  - Feeding disorder [None]
  - Hyperaesthesia [None]
  - Mycosis fungoides [None]
  - Sexual dysfunction [None]
  - Pain [None]
  - Impaired work ability [None]
  - Asthenia [None]

NARRATIVE: CASE EVENT DATE: 20130131
